FAERS Safety Report 7336312-1 (Version None)
Quarter: 2011Q1

REPORT INFORMATION
  Report Type: 
  Country: None (occurrence: None)
  Receive Date: 20110224
  Receipt Date: 20110214
  Transmission Date: 20110831
  Serious: Yes (Hospitalization)
  Sender: FDA-Public Use
  Company Number: IDA-00501

PATIENT
  Age: 38 Year
  Sex: Female

DRUGS (2)
  1. PROPRANOLOL [Suspect]
     Indication: MIGRAINE
     Dates: end: 20090501
  2. DESLORATADINE [Suspect]
     Indication: RHINITIS ALLERGIC
     Dates: end: 20090501

REACTIONS (2)
  - DRUG EXPOSURE DURING PREGNANCY [None]
  - ABORTION INDUCED [None]
